FAERS Safety Report 7524577-2 (Version None)
Quarter: 2011Q2

REPORT INFORMATION
  Report Type: 
  Country: None (occurrence: None)
  Receive Date: 20110606
  Receipt Date: 20110525
  Transmission Date: 20111010
  Serious: Yes (Other)
  Sender: FDA-Public Use
  Company Number: US-JNJFOC-20110512432

PATIENT

DRUGS (2)
  1. DOXIL [Suspect]
     Indication: OVARIAN CANCER
     Route: 042
  2. AVASTIN [Suspect]
     Indication: OVARIAN CANCER
     Route: 065

REACTIONS (1)
  - ANAL ABSCESS [None]
